FAERS Safety Report 10976958 (Version 1)
Quarter: 2015Q2

REPORT INFORMATION
  Report Type: Spontaneous
  Country: CA (occurrence: CA)
  Receive Date: 20150402
  Receipt Date: 20150402
  Transmission Date: 20150821
  Serious: Yes (Other)
  Sender: FDA-Public Use
  Company Number: CA-AMGEN-CANSP2015030560

PATIENT
  Age: 69 Year
  Sex: Female

DRUGS (16)
  1. PROLIA [Suspect]
     Active Substance: DENOSUMAB
     Indication: PRODUCT USED FOR UNKNOWN INDICATION
     Dosage: 60 MG, Q6MO
     Route: 058
  2. REPLAVITE                          /00058902/ [Concomitant]
     Dosage: 3 TIMES PER WEEK
  3. ALFACALCIDOL [Concomitant]
     Active Substance: ALFACALCIDOL
  4. ARANESP [Suspect]
     Active Substance: DARBEPOETIN ALFA
     Indication: ANAEMIA
     Dosage: 20 MUG, QWK
     Route: 058
  5. VITAMIN D                          /00107901/ [Concomitant]
     Active Substance: ERGOCALCIFEROL
     Dosage: 250 MUG, QWK, 10000 IU
     Route: 048
  6. PANTOPRAZOLE [Concomitant]
     Active Substance: PANTOPRAZOLE SODIUM
     Indication: GASTROOESOPHAGEAL REFLUX DISEASE
     Dosage: 40 MG, UNK
  7. SODIUM BICARBONATE. [Concomitant]
     Active Substance: SODIUM BICARBONATE
     Indication: ACIDOSIS
     Dosage: 1 G, UNK, 0.72 G BICARBONATE
  8. MULTIVITAMINS [Concomitant]
     Active Substance: VITAMINS
  9. CALCITRIOL. [Concomitant]
     Active Substance: CALCITRIOL
     Dosage: 0.25 MUG, UNK
     Route: 048
  10. ALLOPURINOL. [Concomitant]
     Active Substance: ALLOPURINOL
     Indication: HYPERURICAEMIA
     Dosage: 100 MG, UNK
  11. AMLODIPINE [Concomitant]
     Active Substance: AMLODIPINE BESYLATE
     Indication: HYPERTENSION
     Dosage: 10 MG, UNK
  12. CALCITONIN [Concomitant]
     Active Substance: CALCITONIN
  13. CALCIUM CARBONATE. [Concomitant]
     Active Substance: CALCIUM CARBONATE
     Dosage: 600 MG, UNK
  14. LOPERAMIDE [Concomitant]
     Active Substance: LOPERAMIDE
     Indication: ABNORMAL FAECES
     Dosage: 4 MG, QID
  15. ZOLEDRONATE [Concomitant]
     Active Substance: ZOLEDRONIC ACID
  16. RALOXIFENE [Concomitant]
     Active Substance: RALOXIFENE

REACTIONS (8)
  - Electrocardiogram QT prolonged [Unknown]
  - Blood creatinine increased [Unknown]
  - Blood parathyroid hormone increased [Recovered/Resolved]
  - Gastrointestinal stoma complication [Unknown]
  - Muscle spasms [Unknown]
  - Hypocalcaemia [Recovered/Resolved]
  - Weight decreased [Unknown]
  - Hypomagnesaemia [Unknown]
